FAERS Safety Report 9322131 (Version 1)
Quarter: 2013Q2

REPORT INFORMATION
  Report Type: Spontaneous
  Country: US (occurrence: US)
  Receive Date: 20130531
  Receipt Date: 20130531
  Transmission Date: 20140414
  Serious: Yes (Other)
  Sender: FDA-Public Use
  Company Number: US-PFIZER INC-2013164918

PATIENT
  Age: 53 Year
  Sex: Female
  Weight: 79.36 kg

DRUGS (3)
  1. CHANTIX [Suspect]
     Indication: SMOKING CESSATION THERAPY
     Dosage: 0.5 MG, 1X/DAY
     Route: 048
     Dates: start: 20130306
  2. CHANTIX [Suspect]
     Dosage: 1 MG, 2X/DAY
     Route: 048
     Dates: start: 201305, end: 201305
  3. CHANTIX [Suspect]
     Dosage: 1 MG, 1X/DAY
     Route: 048
     Dates: start: 201305, end: 20130526

REACTIONS (7)
  - Aggression [Not Recovered/Not Resolved]
  - Anger [Not Recovered/Not Resolved]
  - Hostility [Not Recovered/Not Resolved]
  - Procedural pain [Unknown]
  - Emotional disorder [Not Recovered/Not Resolved]
  - Mood altered [Not Recovered/Not Resolved]
  - Abnormal behaviour [Not Recovered/Not Resolved]
